FAERS Safety Report 9592322 (Version 1)
Quarter: 2013Q3

REPORT INFORMATION
  Report Type: Spontaneous
  Country: US (occurrence: None)
  Receive Date: 20130926
  Receipt Date: 20130926
  Transmission Date: 20140515
  Serious: Yes (Hospitalization, Other)
  Sender: FDA-Public Use
  Company Number: 2010AP002318

PATIENT
  Age: 46 Year
  Sex: Female

DRUGS (8)
  1. CITALOPRAM [Suspect]
  2. OLANZAPINE [Suspect]
  3. TRAMADOL [Concomitant]
  4. ZOLPIDEM [Concomitant]
  5. METAXALONE [Concomitant]
  6. INSULIN GLARGINE [Concomitant]
  7. INSULIN LISPRO [Concomitant]
  8. SULFAMETHOXAZOLE/TRIMETHOPRIM [Concomitant]

REACTIONS (1)
  - Serotonin syndrome [None]
